FAERS Safety Report 5918884-4 (Version None)
Quarter: 2008Q3

REPORT INFORMATION
  Report Type: 
  Country: None (occurrence: None)
  Receive Date: 20080909
  Receipt Date: 20071010
  Transmission Date: 20090109
  Serious: Yes (Hospitalization)
  Sender: FDA-Public Use
  Company Number: 163-20785-07080612

PATIENT
  Age: 73 Year
  Sex: Female

DRUGS (22)
  1. THALOMID [Suspect]
     Indication: MULTIPLE MYELOMA
     Dosage: 100 MG, 2 IN 1 D, ORAL
     Route: 048
     Dates: start: 20070804, end: 20070809
  2. HYDROCHLOROTHIAZIDE [Suspect]
     Indication: DRUG USE FOR UNKNOWN INDICATION
     Dosage: 25 MG, QD
  3. DECADRON [Concomitant]
  4. ZOMETA [Concomitant]
  5. RANITIDINE (RANITIDINE) (TABLETS) [Concomitant]
  6. CALCIUM PLUS D (CALCITE D) (TABLETS) [Concomitant]
  7. PEPCID [Concomitant]
  8. LORAZEPAM [Concomitant]
  9. DEXAMETHASONE TAB [Concomitant]
  10. ARTIFICAL TEARS (ARTIFICIAL TEARS) [Concomitant]
  11. HYPERTONIC SALINE DROPS (SODIUM CHLORIDE) [Concomitant]
  12. ACETAMINOPHEN [Concomitant]
  13. NASONEX (MOMETASONE FUROATE) SPRAY (NOT INHALATION)) [Concomitant]
  14. OSCAL (CALCIUM CARBONATE) [Concomitant]
  15. PROTONIX [Concomitant]
  16. LISINOPRIL [Concomitant]
  17. ATIVAN [Concomitant]
  18. RESTORIL [Concomitant]
  19. MILK OF MAGNESIA TAB [Concomitant]
  20. MULTIPLE VITAMINS (MULTIPLE VITAMINS) (TABLETS) [Concomitant]
  21. COUMADIN [Concomitant]
  22. MURO DROPS (SODIUM CHLORIDE) (DROPS) [Concomitant]

REACTIONS (8)
  - ABDOMINAL PAIN UPPER [None]
  - BLOOD AMYLASE INCREASED [None]
  - DEHYDRATION [None]
  - LIPASE ABNORMAL [None]
  - NAUSEA [None]
  - ORTHOSTATIC HYPOTENSION [None]
  - PANCREATITIS [None]
  - SYNCOPE [None]
